FAERS Safety Report 4463921-X (Version None)
Quarter: 2004Q4

REPORT INFORMATION
  Report Type: 
  Country: None (occurrence: None)
  Receive Date: 20041001
  Receipt Date: 20040921
  Transmission Date: 20050328
  Serious: Yes (Hospitalization)
  Sender: FDA-Public Use
  Company Number: US-JNJFOC-20040907183

PATIENT
  Age: 54 Year
  Sex: Female

DRUGS (5)
  1. DURAGESIC [Suspect]
     Route: 062
  2. ZOCOR [Concomitant]
  3. AMBIEN [Concomitant]
  4. MONOPRIL [Concomitant]
  5. PROPRANOLOL [Concomitant]

REACTIONS (4)
  - ARRHYTHMIA [None]
  - BLOOD CHOLESTEROL INCREASED [None]
  - CHEST PAIN [None]
  - HYPERTENSION [None]
